FAERS Safety Report 9400483 (Version 2)
Quarter: 2013Q3

REPORT INFORMATION
  Report Type: Spontaneous
  Country: US (occurrence: US)
  Receive Date: 20130715
  Receipt Date: 20130822
  Transmission Date: 20140515
  Serious: Yes (Hospitalization)
  Sender: FDA-Public Use
  Company Number: US-GLAXOSMITHKLINE-A1031221A

PATIENT
  Age: 63 Year
  Sex: Male

DRUGS (14)
  1. ADVAIR [Suspect]
     Indication: CHRONIC OBSTRUCTIVE PULMONARY DISEASE
     Dosage: 1PUFF TWICE PER DAY
     Route: 055
     Dates: start: 2003
  2. VENTOLIN [Suspect]
     Indication: CHRONIC OBSTRUCTIVE PULMONARY DISEASE
     Dosage: 2PUFF AS REQUIRED
     Route: 055
     Dates: start: 2003
  3. AMLODIPINE [Concomitant]
  4. BUSPAR [Concomitant]
  5. LAXATIVES [Concomitant]
  6. NARCOTIC ANALGESIC [Concomitant]
     Indication: RESPIRATORY RATE INCREASED
  7. HYDROCODONE [Concomitant]
  8. NEBULIZER [Concomitant]
  9. LORAZEPAM [Concomitant]
  10. MORPHINE SULFATE [Concomitant]
  11. QUETIAPINE [Concomitant]
     Indication: INSOMNIA
  12. SPIRIVA [Concomitant]
  13. TEMAZEPAM [Concomitant]
  14. OXYGEN [Concomitant]

REACTIONS (2)
  - Pneumonia [Not Recovered/Not Resolved]
  - Chronic obstructive pulmonary disease [Unknown]
